FAERS Safety Report 8536921 (Version 2)
Quarter: 2013Q1

REPORT INFORMATION
  Report Type: Spontaneous
  Country: CA (occurrence: CA)
  Receive Date: 20120430
  Receipt Date: 20130102
  Transmission Date: 20140127
  Serious: Yes (Other)
  Sender: FDA-Public Use
  Company Number: CA-JNJFOC-20120409959

PATIENT
  Age: 30 Year
  Sex: Male
  Weight: 100.9 kg

DRUGS (5)
  1. REMICADE [Suspect]
     Indication: CROHN^S DISEASE
     Route: 042
     Dates: start: 20111116
  2. TOPICAL STEROID [Concomitant]
     Route: 061
  3. MORPHINE [Concomitant]
     Route: 061
  4. TYLENOL 3 [Concomitant]
     Route: 065
  5. AZATHIOPRINE [Concomitant]
     Indication: CROHN^S DISEASE
     Route: 048
     Dates: start: 201106

REACTIONS (3)
  - Fistula [Recovered/Resolved]
  - Anal abscess [Recovered/Resolved]
  - Furuncle [Recovered/Resolved]
